FAERS Safety Report 7568772-5 (Version None)
Quarter: 2011Q2

REPORT INFORMATION
  Report Type: 
  Country: None (occurrence: None)
  Receive Date: 20110623
  Receipt Date: 20110614
  Transmission Date: 20111010
  Serious: Yes (Death)
  Sender: FDA-Public Use
  Company Number: FR-ROCHE-782204

PATIENT
  Sex: Male

DRUGS (2)
  1. ACCUTANE [Suspect]
     Indication: ACNE
     Route: 048
     Dates: start: 19961005
  2. ACCUTANE [Suspect]
     Route: 048

REACTIONS (8)
  - HEADACHE [None]
  - CHEILITIS [None]
  - PARANOIA [None]
  - DEPRESSION [None]
  - SUICIDAL IDEATION [None]
  - ARTHRALGIA [None]
  - COMPLETED SUICIDE [None]
  - DRY SKIN [None]
